FAERS Safety Report 5624411-1 (Version None)
Quarter: 2008Q1

REPORT INFORMATION
  Report Type: 
  Country: None (occurrence: None)
  Receive Date: 20080213
  Receipt Date: 20080208
  Transmission Date: 20080703
  Serious: Yes (Hospitalization)
  Sender: FDA-Public Use
  Company Number: DE-BRISTOL-MYERS SQUIBB COMPANY-14070593

PATIENT
  Age: 55 Year
  Sex: Female

DRUGS (1)
  1. IRBESARTAN [Suspect]
     Route: 048
     Dates: start: 20080207, end: 20080207

REACTIONS (2)
  - POISONING [None]
  - SUICIDE ATTEMPT [None]
